FAERS Safety Report 8367629-X (Version None)
Quarter: 2012Q1

REPORT INFORMATION
  Report Type: 
  Country: None (occurrence: None)
  Receive Date: 20120323
  Receipt Date: 20111220
  Transmission Date: 20120608
  Serious: Yes (Life-Threatening, Hospitalization)
  Sender: FDA-Public Use
  Company Number: 163-21880-11111965

PATIENT
  Age: 79 Year
  Sex: Female
  Weight: 52.3451 kg

DRUGS (21)
  1. OXYCODONE HCL [Concomitant]
  2. GABAPENTIN [Concomitant]
  3. VITAMIN D [Concomitant]
  4. FAMOTIDINE [Concomitant]
  5. MORPHINE [Concomitant]
  6. MEGACE [Concomitant]
  7. REQUIP [Concomitant]
  8. FOLIC ACID [Concomitant]
  9. CYMBALTA [Concomitant]
  10. ASPIRIN [Concomitant]
  11. ACYCLOVIR [Concomitant]
  12. LEVOTHYROXINE SODIUM [Concomitant]
  13. REVLIMID [Suspect]
     Indication: MULTIPLE MYELOMA
     Dosage: 15 MG, DAILY X 14 DAYS, PO ; 15 MG, DAILY X 14 DAYS, PO
     Route: 048
     Dates: start: 20110517, end: 20110524
  14. REVLIMID [Suspect]
     Indication: MULTIPLE MYELOMA
     Dosage: 15 MG, DAILY X 14 DAYS, PO ; 15 MG, DAILY X 14 DAYS, PO
     Route: 048
     Dates: start: 20110617
  15. DEXAMETHASONE [Suspect]
     Indication: MULTIPLE MYELOMA
     Dosage: 4 MG, WEEKLY, PO
     Route: 048
     Dates: start: 20110517, end: 20110524
  16. METHOTREXATE [Concomitant]
  17. AMBIEN [Concomitant]
  18. CIPROFLOXACIN [Concomitant]
  19. CALCIUM CALTRATE (CALCIUM CALTRATE) [Concomitant]
  20. MULTI-VITAMINS [Concomitant]
  21. SENNA (SENNA) [Concomitant]

REACTIONS (3)
  - DISEASE PROGRESSION [None]
  - PYREXIA [None]
  - ENDOCARDITIS [None]
